FAERS Safety Report 12092350 (Version 1)
Quarter: 2016Q1

REPORT INFORMATION
  Report Type: Spontaneous
  Country: US (occurrence: None)
  Receive Date: 20160217
  Receipt Date: 20160217
  Transmission Date: 20160526
  Serious: Yes (Hospitalization)
  Sender: FDA-Public Use
  Company Number: None

PATIENT
  Age: 56 Year
  Sex: Male

DRUGS (1)
  1. METHOTREXATE 2.5MG [Suspect]
     Active Substance: METHOTREXATE
     Indication: PSORIASIS
     Dosage: 5 TABS WEEKLY ORAL
     Route: 048

REACTIONS (1)
  - Pancreatitis [None]

NARRATIVE: CASE EVENT DATE: 20160211
